FAERS Safety Report 13461641 (Version 2)
Quarter: 2017Q2

REPORT INFORMATION
  Report Type: Spontaneous
  Country: GR (occurrence: GR)
  Receive Date: 20170420
  Receipt Date: 20170421
  Transmission Date: 20170830
  Serious: Yes (Death)
  Sender: FDA-Public Use
  Company Number: GR-ROCHE-1921638

PATIENT

DRUGS (1)
  1. PIRFENIDONE [Suspect]
     Active Substance: PIRFENIDONE
     Indication: IDIOPATHIC PULMONARY FIBROSIS
     Route: 065

REACTIONS (5)
  - Hypersensitivity [Unknown]
  - Blood bilirubin increased [Unknown]
  - Pneumonia [Fatal]
  - Photosensitivity reaction [Unknown]
  - Gastrointestinal disorder [Unknown]
